FAERS Safety Report 6128341-0 (Version None)
Quarter: 2009Q1

REPORT INFORMATION
  Report Type: 
  Country: None (occurrence: None)
  Receive Date: 20090323
  Receipt Date: 20090317
  Transmission Date: 20090719
  Serious: Yes (Other)
  Sender: FDA-Public Use
  Company Number: B0562685A

PATIENT
  Age: 6 Year
  Sex: Female

DRUGS (2)
  1. RELENZA [Suspect]
     Indication: INFLUENZA
     Dosage: 10MG TWICE PER DAY
     Route: 055
  2. CALONAL [Concomitant]
     Indication: INFLUENZA
     Route: 065

REACTIONS (1)
  - ERYTHEMA MULTIFORME [None]
